FAERS Safety Report 7200568-6 (Version None)
Quarter: 2010Q4

REPORT INFORMATION
  Report Type: 
  Country: None (occurrence: None)
  Receive Date: 20101206
  Receipt Date: 20101118
  Transmission Date: 20110411
  Serious: Yes (Death)
  Sender: FDA-Public Use
  Company Number: OMX-2010-00133

PATIENT
  Age: 49 Year
  Sex: Female
  Weight: 62.1428 kg

DRUGS (2)
  1. EVICEL [Suspect]
     Indication: HAEMOSTASIS
  2. APPLICATOR [Concomitant]

REACTIONS (1)
  - CARDIAC ARREST [None]
